FAERS Safety Report 8901982 (Version 1)
Quarter: 2012Q4

REPORT INFORMATION
  Report Type: 
  Country: FR (occurrence: FR)
  Receive Date: 20121109
  Receipt Date: 20121109
  Transmission Date: 20130627
  Serious: Yes (Hospitalization)
  Sender: FDA-Public Use
  Company Number: FR-009507513-1211FRA002071

PATIENT
  Age: 77 Year
  Sex: Female

DRUGS (14)
  1. COZAAR 50 MG, COMPRIM? PELLICUL? [Suspect]
     Indication: HYPERTENSION
     Dosage: 50 mg, qd
     Route: 048
     Dates: start: 20120914, end: 20120918
  2. CELIPROLOL HYDROCHLORIDE [Concomitant]
  3. DAFALGAN CODEINE [Concomitant]
  4. IMOVANE [Concomitant]
  5. MANSERIN HYDROCHLORIDE [Concomitant]
  6. ZYPREXA [Concomitant]
  7. TRIMEBUTINE [Concomitant]
  8. MOTILIUM [Concomitant]
  9. VALIUM [Concomitant]
  10. SMECTA [Concomitant]
  11. IMODIUM [Concomitant]
  12. TERCIAN [Concomitant]
  13. LOXAPAC (LOXAPINE SUCCINATE) [Concomitant]
  14. ATACAND [Concomitant]
     Indication: HYPERTENSION
     Dosage: UNK
     Dates: end: 20120913

REACTIONS (1)
  - Pancreatitis [Recovering/Resolving]
